FAERS Safety Report 10709854 (Version 1)
Quarter: 2015Q1

REPORT INFORMATION
  Report Type: Spontaneous
  Country: US (occurrence: None)
  Receive Date: 20150113
  Receipt Date: 20150113
  Transmission Date: 20150721
  Serious: Yes (Hospitalization)
  Sender: FDA-Public Use
  Company Number: None

PATIENT
  Age: 89 Year
  Sex: Male
  Weight: 91 kg

DRUGS (17)
  1. ACETAMINOPHEN. [Concomitant]
     Active Substance: ACETAMINOPHEN
  2. LEUPROLIDE [Concomitant]
     Active Substance: LEUPROLIDE
  3. BISACODYL. [Concomitant]
     Active Substance: BISACODYL
  4. WARFARIN [Suspect]
     Active Substance: WARFARIN
     Indication: ATRIAL FIBRILLATION
     Route: 048
  5. FERROUS SULFATE [Concomitant]
     Active Substance: FERROUS SULFATE\FERROUS SULFATE, DRIED
  6. MAGNESIUM CALCIUM CARBONATE [Concomitant]
  7. LEVOTHYROXINE [Concomitant]
     Active Substance: LEVOTHYROXINE
  8. FUROSEMIDE. [Concomitant]
     Active Substance: FUROSEMIDE
  9. GUAIFENESIN. [Concomitant]
     Active Substance: GUAIFENESIN
  10. FOLIC ACID. [Concomitant]
     Active Substance: FOLIC ACID
  11. LISINOPRIL. [Concomitant]
     Active Substance: LISINOPRIL
  12. DIGOXIN. [Concomitant]
     Active Substance: DIGOXIN
  13. PRAVASTATIN [Concomitant]
     Active Substance: PRAVASTATIN\PRAVASTATIN SODIUM
  14. LOPERAMIDE [Concomitant]
     Active Substance: LOPERAMIDE
  15. MAALOX METHENAMINE [Concomitant]
  16. CARVEDILOL. [Concomitant]
     Active Substance: CARVEDILOL
  17. PSEUDOEPHEDRINE [Concomitant]
     Active Substance: PSEUDOEPHEDRINE

REACTIONS (3)
  - Disease recurrence [None]
  - Gastrointestinal haemorrhage [None]
  - Cerebrovascular accident [None]

NARRATIVE: CASE EVENT DATE: 20140702
